FAERS Safety Report 10034341 (Version 1)
Quarter: 2014Q1

REPORT INFORMATION
  Report Type: Spontaneous
  Country: US (occurrence: None)
  Receive Date: 20140324
  Receipt Date: 20140324
  Transmission Date: 20141002
  Serious: Yes (Life-Threatening)
  Sender: FDA-Public Use
  Company Number: None

PATIENT
  Age: 59 Year
  Sex: Female

DRUGS (2)
  1. SAVELLA [Suspect]
     Indication: NEUROPATHY PERIPHERAL
     Dosage: 1 PILLS, TWICE DAILY, TAKEN BY MOUTH
     Route: 048
     Dates: start: 20140124, end: 20140321
  2. SAVELLA [Suspect]
     Indication: BACK PAIN
     Dosage: 1 PILLS, TWICE DAILY, TAKEN BY MOUTH
     Route: 048
     Dates: start: 20140124, end: 20140321

REACTIONS (7)
  - Asthenia [None]
  - Palpitations [None]
  - Headache [None]
  - Abdominal pain [None]
  - Muscular weakness [None]
  - Pain [None]
  - Blood pressure increased [None]
